FAERS Safety Report 9774582 (Version 1)
Quarter: 2013Q4

REPORT INFORMATION
  Report Type: Spontaneous
  Country: US (occurrence: None)
  Receive Date: 20131219
  Receipt Date: 20131219
  Transmission Date: 20140711
  Serious: Yes (Life-Threatening, Hospitalization)
  Sender: FDA-Public Use
  Company Number: None

PATIENT
  Age: 24 Year
  Sex: Female
  Weight: 71.7 kg

DRUGS (1)
  1. METRONIDAZOLE 500MG [Suspect]
     Indication: VAGINAL INFECTION
     Dosage: 1 TAB TID ORAL
     Route: 067
     Dates: start: 20131008, end: 20131022

REACTIONS (3)
  - Pyrexia [None]
  - Sepsis [None]
  - Meningitis aseptic [None]
